FAERS Safety Report 5355254-4 (Version None)
Quarter: 2007Q2

REPORT INFORMATION
  Report Type: 
  Country: None (occurrence: None)
  Receive Date: 20070613
  Receipt Date: 20070604
  Transmission Date: 20071010
  Serious: Yes (Hospitalization)
  Sender: FDA-Public Use
  Company Number: PHEH2007US05280

PATIENT
  Age: 52 Year
  Sex: Female
  Weight: 95.238 kg

DRUGS (15)
  1. ZELNORM [Suspect]
     Indication: IRRITABLE BOWEL SYNDROME
     Dosage: 6 MG, BID
     Route: 048
     Dates: start: 20070206, end: 20070414
  2. ATENOLOL [Concomitant]
     Dosage: 25 MG, BID
  3. FELODIPINE [Concomitant]
     Dosage: 5 MG, QD
  4. HYDROCODONE BITARTRATE [Concomitant]
     Dosage: 10 Q4-6HRS
  5. RELAFEN [Concomitant]
     Dosage: 750 MG, BID
  6. LIDODERM [Concomitant]
     Dosage: UNK, Q12H
  7. PLAVIX [Concomitant]
     Dosage: 75 MG, QD
  8. SIMVASTATIN [Concomitant]
     Dosage: 40 MG, QHS
  9. ASPIRIN [Concomitant]
     Dosage: 81 MG, QD
  10. GABAPENTIN [Concomitant]
     Dosage: 300 MG, BID
  11. AMITRIPTYLINE HCL [Concomitant]
     Dosage: 25 MG, QHS
  12. FUROSEMIDE [Concomitant]
     Dosage: 40 MG, QD
  13. POTASSIUM CHLORIDE [Concomitant]
     Dosage: 10 MEQ, QD
  14. ESTRADIOL [Concomitant]
     Dosage: UNK, QD
  15. NASACORT [Concomitant]
     Dosage: 2 SPRAYS QNOSTRIL QD

REACTIONS (9)
  - ARTERIOSPASM CORONARY [None]
  - CHEST DISCOMFORT [None]
  - CHEST PAIN [None]
  - DYSPNOEA [None]
  - ELECTROCARDIOGRAM ABNORMAL [None]
  - GASTROOESOPHAGEAL REFLUX DISEASE [None]
  - HYPERHIDROSIS [None]
  - MYOCARDIAL ISCHAEMIA [None]
  - NASAL CONGESTION [None]
